FAERS Safety Report 17309654 (Version 1)
Quarter: 2020Q1

REPORT INFORMATION
  Report Type: Spontaneous
  Country: US (occurrence: US)
  Receive Date: 20200123
  Receipt Date: 20200123
  Transmission Date: 20200409
  Serious: No
  Sender: FDA-Public Use
  Company Number: US-ROCHE-2365864

PATIENT
  Sex: Male

DRUGS (1)
  1. HEMLIBRA [Suspect]
     Active Substance: EMICIZUMAB-KXWH
     Indication: HAEMOPHILIA
     Dosage: 150 MG/ML
     Route: 058
     Dates: start: 201906

REACTIONS (3)
  - Post-traumatic stress disorder [Unknown]
  - Blood testosterone decreased [Unknown]
  - Pain [Unknown]
